FAERS Safety Report 13840932 (Version 3)
Quarter: 2019Q4

REPORT INFORMATION
  Report Type: Report from Study
  Country: US (occurrence: US)
  Receive Date: 20170807
  Receipt Date: 20191125
  Transmission Date: 20200122
  Serious: Yes (Death, Hospitalization)
  Sender: FDA-Public Use
  Company Number: US-OTSUKA-2017_016829

PATIENT
  Age: 64 Year
  Sex: Female

DRUGS (2)
  1. TOLVAPTAN [Suspect]
     Active Substance: TOLVAPTAN
     Indication: BLOOD OSMOLARITY INCREASED
     Dosage: 2 DF (30MG) , QD
     Route: 048
  2. TOLVAPTAN [Suspect]
     Active Substance: TOLVAPTAN
     Indication: HYPERNATRAEMIA
     Dosage: 45 MG, QD (30 MG + 15 MG)
     Route: 048
     Dates: start: 201611

REACTIONS (3)
  - Product use in unapproved indication [Unknown]
  - Constipation [Unknown]
  - Death [Fatal]

NARRATIVE: CASE EVENT DATE: 201611
